FAERS Safety Report 8090705-6 (Version None)
Quarter: 2012Q1

REPORT INFORMATION
  Report Type: 
  Country: None (occurrence: None)
  Receive Date: 20120130
  Receipt Date: 20120123
  Transmission Date: 20120608
  Serious: Yes (Life-Threatening, Hospitalization)
  Sender: FDA-Public Use
  Company Number: FR-MERCK-1201FRA00096

PATIENT
  Age: 81 Year
  Sex: Female

DRUGS (10)
  1. CANDESARTAN CILEXETIL AND HYDROCHLOROTHIAZIDE [Suspect]
     Indication: CARDIAC FAILURE CHRONIC
     Route: 048
     Dates: start: 20110101, end: 20111123
  2. SPIRONOLACTONE [Suspect]
     Indication: CARDIAC FAILURE CHRONIC
     Route: 048
     Dates: start: 20110101, end: 20111114
  3. EZETIMIBE [Suspect]
     Route: 048
     Dates: start: 20110101, end: 20111123
  4. FUROSEMIDE [Concomitant]
     Route: 048
     Dates: start: 20111124, end: 20111127
  5. PANTOPRAZOLE SODIUM [Suspect]
     Route: 048
     Dates: start: 20110101, end: 20111123
  6. FLUINDIONE [Suspect]
     Indication: ATRIAL FIBRILLATION
     Route: 048
     Dates: start: 20110101, end: 20111123
  7. FUROSEMIDE [Concomitant]
     Route: 048
     Dates: start: 20111114, end: 20111123
  8. JANUVIA [Suspect]
     Route: 048
     Dates: start: 20110101, end: 20111123
  9. FUROSEMIDE [Concomitant]
     Route: 048
     Dates: end: 20111113
  10. BISOPROLOL [Suspect]
     Route: 048
     Dates: start: 20110101, end: 20111123

REACTIONS (3)
  - CIRCULATORY COLLAPSE [None]
  - HYPERKALAEMIA [None]
  - RENAL FAILURE ACUTE [None]
